FAERS Safety Report 7756529-1 (Version None)
Quarter: 2011Q3

REPORT INFORMATION
  Report Type: 
  Country: None (occurrence: None)
  Receive Date: 20110916
  Receipt Date: 20110906
  Transmission Date: 20111222
  Serious: Yes (Death)
  Sender: FDA-Public Use
  Company Number: US-ELI_LILLY_AND_COMPANY-US201010000385

PATIENT
  Sex: Male

DRUGS (16)
  1. METOPROLOL TARTRATE [Concomitant]
  2. VITAMIN D [Concomitant]
  3. MUCOMYST [Concomitant]
  4. FORTEO [Suspect]
     Dosage: 20 UG, QD
     Route: 058
     Dates: end: 20110714
  5. COUMADIN [Concomitant]
  6. SPIRIVA [Concomitant]
  7. QVAR 40 [Concomitant]
  8. TAMSULOSIN HCL [Concomitant]
  9. SYMBICORT [Concomitant]
  10. AZITHROMYCIN [Concomitant]
  11. ANDROGEL [Concomitant]
  12. XOPENEX [Concomitant]
  13. FORTEO [Suspect]
     Indication: OSTEOPOROSIS
     Dosage: 20 UG, DAILY (1/D)
     Route: 058
     Dates: start: 20100716
  14. MEGACE [Concomitant]
  15. CEFTIN [Concomitant]
  16. CRESTOR [Concomitant]

REACTIONS (2)
  - DEATH [None]
  - INJECTION SITE HAEMATOMA [None]
